FAERS Safety Report 14546924 (Version 1)
Quarter: 2018Q1

REPORT INFORMATION
  Report Type: Report from Study
  Country: US (occurrence: US)
  Receive Date: 20180219
  Receipt Date: 20180219
  Transmission Date: 20180509
  Serious: Yes (Hospitalization)
  Sender: FDA-Public Use
  Company Number: US-JNJFOC-20180137381

PATIENT
  Age: 76 Year
  Sex: Female

DRUGS (9)
  1. FUROSEMIDE. [Concomitant]
     Active Substance: FUROSEMIDE
  2. IRON [Concomitant]
     Active Substance: IRON
  3. ASPIRIN. [Concomitant]
     Active Substance: ASPIRIN
  4. METOPROLOL TARTRATE. [Concomitant]
     Active Substance: METOPROLOL TARTRATE
  5. PLAVIX [Concomitant]
     Active Substance: CLOPIDOGREL BISULFATE
  6. IMBRUVICA [Suspect]
     Active Substance: IBRUTINIB
     Indication: CHRONIC LYMPHOCYTIC LEUKAEMIA
     Route: 048
     Dates: start: 20180122
  7. NOVOLOG [Concomitant]
     Active Substance: INSULIN ASPART
     Dosage: 100UNIT
     Route: 058
  8. POTASSIUM CHLORIDE. [Concomitant]
     Active Substance: POTASSIUM CHLORIDE
  9. LOVASTATIN. [Concomitant]
     Active Substance: LOVASTATIN

REACTIONS (6)
  - Faeces discoloured [Unknown]
  - Muscle spasms [Unknown]
  - Haematuria [Unknown]
  - Diarrhoea [Not Recovered/Not Resolved]
  - Frequent bowel movements [Unknown]
  - Arrhythmia [Unknown]

NARRATIVE: CASE EVENT DATE: 20180122
